FAERS Safety Report 9994183 (Version 1)
Quarter: 2014Q1

REPORT INFORMATION
  Report Type: Spontaneous
  Country: CA (occurrence: CA)
  Receive Date: 20140310
  Receipt Date: 20140310
  Transmission Date: 20141002
  Serious: Yes (Hospitalization, Other)
  Sender: FDA-Public Use
  Company Number: CA-009507513-1403CAN003012

PATIENT
  Age: 74 Year
  Sex: Female
  Weight: 77.98 kg

DRUGS (2)
  1. FOSAMAX [Suspect]
     Route: 065
  2. FOSAVANCE [Suspect]
     Route: 048

REACTIONS (2)
  - Stress fracture [Not Recovered/Not Resolved]
  - Atypical femur fracture [Not Recovered/Not Resolved]
